FAERS Safety Report 21746040 (Version 1)
Quarter: 2022Q4

REPORT INFORMATION
  Report Type: Spontaneous
  Country: IN (occurrence: IN)
  Receive Date: 20221219
  Receipt Date: 20221219
  Transmission Date: 20230113
  Serious: Yes (Other)
  Sender: FDA-Public Use
  Company Number: IN-drreddys-SPO/IND/22/0158334

PATIENT
  Age: 32 Year
  Sex: Male

DRUGS (2)
  1. CAPECITABINE [Suspect]
     Active Substance: CAPECITABINE
     Indication: Oesophageal adenocarcinoma
  2. IRINOTECAN [Suspect]
     Active Substance: IRINOTECAN
     Indication: Oesophageal adenocarcinoma

REACTIONS (3)
  - Phimosis [Recovered/Resolved]
  - Palmar-plantar erythrodysaesthesia syndrome [Recovered/Resolved]
  - Product use in unapproved indication [Unknown]
